FAERS Safety Report 19640471 (Version 2)
Quarter: 2021Q3

REPORT INFORMATION
  Report Type: Spontaneous
  Country: IT (occurrence: IT)
  Receive Date: 20210730
  Receipt Date: 20210914
  Transmission Date: 20211014
  Serious: Yes (Other)
  Sender: FDA-Public Use
  Company Number: IT-TEVA-2021-IT-1937792

PATIENT
  Age: 62 Year
  Sex: Male

DRUGS (4)
  1. TRAMADOL. [Suspect]
     Active Substance: TRAMADOL
     Route: 065
  2. KETOPROFEN. [Concomitant]
     Active Substance: KETOPROFEN
     Route: 065
  3. KETOPROFEN. [Suspect]
     Active Substance: KETOPROFEN
     Route: 065
  4. ARTROSILENE [Suspect]
     Active Substance: KETOPROFEN
     Route: 065

REACTIONS (2)
  - Hypersensitivity [Unknown]
  - Tongue oedema [Unknown]

NARRATIVE: CASE EVENT DATE: 20210706
